FAERS Safety Report 14989107 (Version 4)
Quarter: 2018Q3

REPORT INFORMATION
  Report Type: Spontaneous
  Country: CA (occurrence: CA)
  Receive Date: 20180608
  Receipt Date: 20180704
  Transmission Date: 20181010
  Serious: Yes (Other)
  Sender: FDA-Public Use
  Company Number: CA-CELLTRION INC.-2017CA016763

PATIENT

DRUGS (5)
  1. INFLECTRA [Suspect]
     Active Substance: INFLIXIMAB-DYYB
     Dosage: 300 MG, CYCLIC, 8 WEEKS
     Route: 042
     Dates: start: 20180406, end: 20180406
  2. INFLECTRA [Suspect]
     Active Substance: INFLIXIMAB-DYYB
     Dosage: 300 MG, CYCLIC, 8 WEEKS
     Route: 042
     Dates: start: 20180213, end: 20180213
  3. SULFASALAZINE. [Concomitant]
     Active Substance: SULFASALAZINE
     Dosage: UNK
     Dates: start: 2007
  4. METHOTREXATE. [Concomitant]
     Active Substance: METHOTREXATE
     Dosage: UNK
  5. INFLECTRA [Suspect]
     Active Substance: INFLIXIMAB-DYYB
     Indication: PSORIATIC ARTHROPATHY
     Dosage: 300 MG, CYCLIC,EVERY 0,2,6 WEEKS, THEN EVERY 12 WEEKS
     Route: 042
     Dates: start: 20171103, end: 20171222

REACTIONS (12)
  - Infection [Recovering/Resolving]
  - Erythema [Recovering/Resolving]
  - Product use issue [Unknown]
  - Bursitis [Recovering/Resolving]
  - Rash [Not Recovered/Not Resolved]
  - Oropharyngeal pain [Not Recovered/Not Resolved]
  - Pyrexia [Not Recovered/Not Resolved]
  - Joint injury [Unknown]
  - Joint swelling [Recovered/Resolved]
  - Joint warmth [Recovering/Resolving]
  - Influenza [Not Recovered/Not Resolved]
  - Cellulitis [Unknown]

NARRATIVE: CASE EVENT DATE: 201805
